FAERS Safety Report 8164578-7 (Version None)
Quarter: 2012Q1

REPORT INFORMATION
  Report Type: 
  Country: None (occurrence: None)
  Receive Date: 20120227
  Receipt Date: 20120220
  Transmission Date: 20120608
  Serious: Yes (Life-Threatening, Hospitalization)
  Sender: FDA-Public Use
  Company Number: FR-BRISTOL-MYERS SQUIBB COMPANY-16396889

PATIENT
  Age: 84 Year
  Sex: Female

DRUGS (5)
  1. ONGLYZA [Suspect]
     Indication: TYPE 2 DIABETES MELLITUS
     Route: 048
     Dates: start: 20111213
  2. IRBESARTAN [Concomitant]
  3. ASPIRIN [Concomitant]
  4. GLICLAZIDE [Concomitant]
     Dosage: GLICLAZIDE LM
  5. METFORMIN HCL [Concomitant]

REACTIONS (3)
  - CHOLECYSTITIS ACUTE [None]
  - SEPTIC SHOCK [None]
  - GALLBLADDER NECROSIS [None]
